FAERS Safety Report 7940423-7 (Version None)
Quarter: 2011Q4

REPORT INFORMATION
  Report Type: 
  Country: None (occurrence: None)
  Receive Date: 20111127
  Receipt Date: 20111114
  Transmission Date: 20120403
  Serious: Yes (Death, Other)
  Sender: FDA-Public Use
  Company Number: JP-SANOFI-AVENTIS-2011SA062945

PATIENT
  Age: 81 Year
  Sex: Male
  Weight: 63 kg

DRUGS (9)
  1. ISOSORBIDE MONONITRATE [Concomitant]
     Indication: MYOCARDIAL INFARCTION
     Route: 048
     Dates: start: 20100712
  2. HEPARIN [Concomitant]
     Indication: MYOCARDIAL INFARCTION
     Dosage: DOSE:10000 UNIT(S)
     Route: 040
     Dates: start: 20100712, end: 20100713
  3. CARVEDILOL [Concomitant]
     Indication: MYOCARDIAL INFARCTION
     Route: 048
     Dates: start: 20100724
  4. PLAVIX [Suspect]
     Indication: MYOCARDIAL INFARCTION
     Route: 065
     Dates: start: 20100712, end: 20100713
  5. ASPIRIN [Concomitant]
     Indication: MYOCARDIAL INFARCTION
     Route: 048
     Dates: start: 20100712, end: 20100713
  6. LANSOPRAZOLE [Concomitant]
     Route: 048
     Dates: start: 20100712
  7. HEPARIN [Concomitant]
     Dosage: DOSE:6000 UNIT(S)
     Route: 040
     Dates: start: 20100712, end: 20100712
  8. LIPITOR [Concomitant]
     Route: 048
     Dates: start: 20100712
  9. AMARYL [Concomitant]
     Route: 048
     Dates: start: 20100722

REACTIONS (1)
  - VENTRICLE RUPTURE [None]
